FAERS Safety Report 4371677-4 (Version None)
Quarter: 2004Q2

REPORT INFORMATION
  Report Type: 
  Country: None (occurrence: None)
  Receive Date: 20040602
  Receipt Date: 20040520
  Transmission Date: 20050107
  Serious: Yes (Death)
  Sender: FDA-Public Use
  Company Number: JP-JNJFOC-20040406091

PATIENT
  Age: 56 Year
  Sex: Female

DRUGS (9)
  1. FENTANYL [Suspect]
     Indication: CANCER PAIN
     Dosage: 10 MG, 1 IN 3 DAY, TRANSDERMAL
     Route: 062
     Dates: start: 20040208, end: 20040210
  2. HALOPERIDOL [Concomitant]
  3. BUPRENORPHINE HYDROCHLORIDE (BUPRENORPHINE HYDROCLORIDE) UNSPECIFIED [Concomitant]
  4. HYDROXYZINE HCL [Concomitant]
  5. DIAZEPAM (DIAZEPAM) UNSPECIFIED [Concomitant]
  6. AMINOFLUID (AMINOFLUID) UNSPECIFIED [Concomitant]
  7. TRIFLUID (ALL OTHER NON-THERAPEUTIC PRODUCTS) [Concomitant]
  8. VITAMIN B COMPLEX (B-KOMPLEX ^LECIVA^) [Concomitant]
  9. VITAMEDIN INTRAVENOUS (VITAMEDIN INTRAVENOUS) [Concomitant]

REACTIONS (1)
  - DEATH [None]
